FAERS Safety Report 5342702-9 (Version None)
Quarter: 2007Q2

REPORT INFORMATION
  Report Type: 
  Country: None (occurrence: None)
  Receive Date: 20070601
  Receipt Date: 20070313
  Transmission Date: 20071010
  Serious: No
  Sender: FDA-Public Use
  Company Number: A0643082A

PATIENT
  Age: 33 Year
  Sex: Male

DRUGS (2)
  1. AMOXICILLIN + CLAVULANATE POTASSIUM [Suspect]
     Indication: INFECTION
     Dosage: 125MG TWICE PER DAY
     Dates: start: 20070303, end: 20070313
  2. PREDNISONE TAB [Concomitant]

REACTIONS (1)
  - RASH [None]
